FAERS Safety Report 7139501-4 (Version None)
Quarter: 2010Q4

REPORT INFORMATION
  Report Type: 
  Country: None (occurrence: None)
  Receive Date: 20101206
  Receipt Date: 20101126
  Transmission Date: 20110411
  Serious: Yes (Hospitalization)
  Sender: FDA-Public Use
  Company Number: JP-ABBOTT-10P-087-0686792-00

PATIENT
  Sex: Female
  Weight: 2.35 kg

DRUGS (4)
  1. SEVOFLURANE [Suspect]
     Indication: DRUG EXPOSURE DURING PREGNANCY
     Route: 064
  2. ROCURONIUM BROMIDE [Suspect]
     Indication: DRUG EXPOSURE DURING PREGNANCY
     Route: 064
  3. EPHEDRINE HYDROCHLORIDE [Concomitant]
     Indication: BLOOD ANTIDIURETIC HORMONE DECREASED
     Dates: start: 20101012, end: 20101012
  4. PHENYLEPHRINE HYDROCHLORIDE [Concomitant]
     Indication: BLOOD ANTIDIURETIC HORMONE DECREASED
     Dates: start: 20101012, end: 20101012

REACTIONS (2)
  - DRUG EXPOSURE DURING PREGNANCY [None]
  - RHABDOMYOLYSIS [None]
